FAERS Safety Report 8920950 (Version 1)
Quarter: 2012Q4

REPORT INFORMATION
  Report Type: 
  Country: AT (occurrence: AT)
  Receive Date: 20121123
  Receipt Date: 20121123
  Transmission Date: 20130627
  Serious: Yes (Other)
  Sender: FDA-Public Use
  Company Number: AT-AMGEN-AUTSP2012074406

PATIENT
  Sex: Male
  Weight: 75 kg

DRUGS (7)
  1. XGEVA [Suspect]
     Indication: METASTASES TO BONE
     Dosage: UNK UNK, qmo
     Dates: start: 2012
  2. THROMBO ASS [Concomitant]
  3. CALCIUM + VITAMIN D                /01483701/ [Concomitant]
  4. IRESSA [Concomitant]
  5. SELENIUM [Concomitant]
  6. ZINC [Concomitant]
  7. TRAMAL [Concomitant]

REACTIONS (4)
  - Monoplegia [Unknown]
  - Muscular weakness [Unknown]
  - Mobility decreased [Unknown]
  - Muscle spasms [Unknown]
